FAERS Safety Report 16174551 (Version 1)
Quarter: 2019Q2

REPORT INFORMATION
  Report Type: Spontaneous
  Country: JP (occurrence: JP)
  Receive Date: 20190409
  Receipt Date: 20190409
  Transmission Date: 20190711
  Serious: Yes (Other)
  Sender: FDA-Public Use
  Company Number: JP-ELI_LILLY_AND_COMPANY-JP201904003997

PATIENT
  Age: 54 Year
  Sex: Female

DRUGS (16)
  1. MAGMITT [Concomitant]
     Active Substance: MAGNESIUM OXIDE
     Indication: CONSTIPATION
     Dosage: 1320 MG, UNK
     Route: 048
     Dates: start: 20131017, end: 20131107
  2. SENNARIDE [Concomitant]
     Active Substance: SENNOSIDES A AND B
     Indication: CONSTIPATION
     Dosage: 48 MG, UNK
     Route: 048
     Dates: start: 20131017
  3. LENDORMIN [Concomitant]
     Active Substance: BROTIZOLAM
     Indication: SCHIZOPHRENIA
     Dosage: 0.25 MG, UNK
     Route: 048
     Dates: start: 20131115
  4. RIBAVARIN [Concomitant]
     Active Substance: RIBAVIRIN
     Indication: NASOPHARYNGITIS
     Dosage: 750 MG, UNK
     Route: 048
     Dates: start: 20131212, end: 20131215
  5. NELBON [Concomitant]
     Active Substance: NITRAZEPAM
     Indication: SCHIZOPHRENIA
     Dosage: 5 MG, UNK
     Route: 048
     Dates: start: 20131111, end: 20131114
  6. ROHYPNOL [Concomitant]
     Active Substance: FLUNITRAZEPAM
     Dosage: 1 MG, UNKNOWN
     Route: 048
     Dates: start: 20131017, end: 20131107
  7. PALIPERIDONE. [Concomitant]
     Active Substance: PALIPERIDONE
     Indication: SCHIZOPHRENIA
     Dosage: 6 MG, QD
     Route: 065
  8. LIMAS [Concomitant]
     Active Substance: LITHIUM CARBONATE
     Indication: SCHIZOPHRENIA
     Dosage: 400 MG, UNK
     Route: 048
     Dates: start: 20131017, end: 20131107
  9. TAKA-DIASTASE [Concomitant]
     Active Substance: DIASTASE
     Indication: CONSTIPATION
     Dosage: 2600 MG, UNK
     Route: 048
     Dates: start: 20131017, end: 20131107
  10. OLANZAPINE. [Suspect]
     Active Substance: OLANZAPINE
     Indication: SCHIZOPHRENIA
     Dosage: UNK UNK, UNKNOWN
     Route: 065
  11. HALOPERIDOL. [Suspect]
     Active Substance: HALOPERIDOL
     Indication: SCHIZOPHRENIA
     Dosage: UNK, UNKNOWN
     Route: 065
  12. CLOZARIL [Suspect]
     Active Substance: CLOZAPINE
     Dosage: UNK
     Route: 048
     Dates: start: 20130716
  13. ROHYPNOL [Concomitant]
     Active Substance: FLUNITRAZEPAM
     Indication: SCHIZOPHRENIA
     Dosage: 2 MG, UNK
     Route: 048
     Dates: start: 20131128
  14. CLOZARIL [Suspect]
     Active Substance: CLOZAPINE
     Indication: SCHIZOPHRENIA
     Dosage: 450 MG, UNK
     Route: 048
     Dates: start: 20131017, end: 20131107
  15. MUCODYNE [Concomitant]
     Active Substance: CARBOCYSTEINE
     Indication: NASOPHARYNGITIS
     Dosage: 1500 MG, UNK
     Route: 048
     Dates: start: 20131125, end: 20131208
  16. BLONANSERIN [Concomitant]
     Active Substance: BLONANSERIN
     Indication: SCHIZOPHRENIA
     Dosage: UNK, UNKNOWN
     Route: 065

REACTIONS (10)
  - Dysphagia [Unknown]
  - Neutropenia [Unknown]
  - Depressed level of consciousness [Unknown]
  - Blood pressure decreased [Unknown]
  - Musculoskeletal stiffness [Unknown]
  - Pyrexia [Unknown]
  - Salivary hypersecretion [Unknown]
  - Drug ineffective [Unknown]
  - Agranulocytosis [Unknown]
  - Leukopenia [Recovering/Resolving]

NARRATIVE: CASE EVENT DATE: 20131107
